FAERS Safety Report 5045011-0 (Version None)
Quarter: 2006Q3

REPORT INFORMATION
  Report Type: 
  Country: None (occurrence: None)
  Receive Date: 20060707
  Receipt Date: 20060628
  Transmission Date: 20061208
  Serious: Yes (Other)
  Sender: FDA-Public Use
  Company Number: PHBS2006TT09707

PATIENT
  Age: 70 Year
  Sex: Female

DRUGS (2)
  1. TRILEPTAL [Suspect]
     Indication: CARPAL TUNNEL SYNDROME
     Dosage: 300 MG, BID
     Route: 048
  2. ANTIHYPERTENSIVES [Concomitant]
     Route: 065

REACTIONS (2)
  - HALLUCINATION [None]
  - LETHARGY [None]
